FAERS Safety Report 4399266-6 (Version None)
Quarter: 2004Q3

REPORT INFORMATION
  Report Type: 
  Country: None (occurrence: None)
  Receive Date: 20040712
  Receipt Date: 20040618
  Transmission Date: 20050211
  Serious: Yes (Death, Other)
  Sender: FDA-Public Use
  Company Number: USA040568171

PATIENT
  Age: 75 Year
  Sex: Male
  Weight: 78 kg

DRUGS (3)
  1. FORTEO [Suspect]
     Indication: OSTEOPOROSIS
     Dates: start: 20030901, end: 20040104
  2. PREDNISONE [Concomitant]
  3. ALLOPURINOL [Concomitant]

REACTIONS (4)
  - CARDIOVASCULAR DISORDER [None]
  - CAROTID ARTERY DISEASE [None]
  - HYPERPARATHYROIDISM [None]
  - SPINAL COMPRESSION FRACTURE [None]
